FAERS Safety Report 4743015-6 (Version None)
Quarter: 2005Q3

REPORT INFORMATION
  Report Type: 
  Country: None (occurrence: None)
  Receive Date: 20050811
  Receipt Date: 20050801
  Transmission Date: 20060218
  Serious: Yes (Disabling)
  Sender: FDA-Public Use
  Company Number: GB-ABBOTT-05P-167-0307285-00

PATIENT
  Age: 49 Year
  Sex: Female

DRUGS (1)
  1. CLARITHROMYCIN [Suspect]
     Indication: BRONCHIECTASIS
     Route: 048
     Dates: start: 20050702, end: 20050709

REACTIONS (1)
  - ALOPECIA [None]
